FAERS Safety Report 6391614-0 (Version None)
Quarter: 2009Q4

REPORT INFORMATION
  Report Type: 
  Country: None (occurrence: None)
  Receive Date: 20091007
  Receipt Date: 20090701
  Transmission Date: 20100525
  Serious: No
  Sender: FDA-Public Use
  Company Number: A0787703A

PATIENT
  Age: 68 Year
  Sex: Male
  Weight: 72.3 kg

DRUGS (3)
  1. ADVAIR DISKUS 100/50 [Suspect]
     Indication: ASTHMA
     Route: 055
     Dates: start: 20090501
  2. IPRATROPIUM BROMIDE [Concomitant]
  3. ALBUTEROL [Concomitant]

REACTIONS (1)
  - DYSPHONIA [None]
